FAERS Safety Report 13016981 (Version 1)
Quarter: 2016Q4

REPORT INFORMATION
  Report Type: Spontaneous
  Country: US (occurrence: US)
  Receive Date: 20161209
  Receipt Date: 20161209
  Transmission Date: 20170207
  Serious: No
  Sender: FDA-Public Use
  Company Number: None

PATIENT
  Age: 66 Year
  Sex: Female
  Weight: 76.5 kg

DRUGS (6)
  1. HYDROCODONE /ACETA [Suspect]
     Active Substance: ACETAMINOPHEN\HYDROCODONE
     Indication: FIBROMYALGIA
     Dosage: ?          QUANTITY:120 TABLET(S);?
     Route: 048
     Dates: start: 20161102
  2. HYDROCODONE /ACETA [Suspect]
     Active Substance: ACETAMINOPHEN\HYDROCODONE
     Indication: NEUROPATHY PERIPHERAL
     Dosage: ?          QUANTITY:120 TABLET(S);?
     Route: 048
     Dates: start: 20161102
  3. HYDROCODONE [Concomitant]
     Active Substance: HYDROCODONE
  4. VITAMIN B12 [Concomitant]
     Active Substance: CYANOCOBALAMIN
  5. HYDROCODONE /ACETA [Suspect]
     Active Substance: ACETAMINOPHEN\HYDROCODONE
     Indication: PAIN
     Dosage: ?          QUANTITY:120 TABLET(S);?
     Route: 048
     Dates: start: 20161102
  6. VITAMIN D [Concomitant]
     Active Substance: CHOLECALCIFEROL

REACTIONS (4)
  - Drug ineffective [None]
  - Product substitution issue [None]
  - Dysphagia [None]
  - Abdominal pain [None]

NARRATIVE: CASE EVENT DATE: 20161102
